FAERS Safety Report 7609132-8 (Version None)
Quarter: 2011Q3

REPORT INFORMATION
  Report Type: 
  Country: None (occurrence: None)
  Receive Date: 20110714
  Receipt Date: 20110708
  Transmission Date: 20111222
  Serious: Yes (Hospitalization)
  Sender: FDA-Public Use
  Company Number: US-JNJFOC-20110704392

PATIENT
  Sex: Female
  Weight: 95.26 kg

DRUGS (3)
  1. NEXIUM [Concomitant]
     Indication: GASTROOESOPHAGEAL REFLUX DISEASE
     Route: 048
  2. MAXZIDE [Concomitant]
     Indication: BLOOD PRESSURE
     Dosage: FORMULATION 37.5
     Route: 048
  3. DOXIL [Suspect]
     Indication: ENDOMETRIAL CANCER
     Route: 042
     Dates: start: 20110601

REACTIONS (2)
  - ABSCESS INTESTINAL [None]
  - RASH [None]
